FAERS Safety Report 5044793-1 (Version None)
Quarter: 2006Q2

REPORT INFORMATION
  Report Type: 
  Country: None (occurrence: None)
  Receive Date: 20060607
  Receipt Date: 20060202
  Transmission Date: 20061013
  Serious: No
  Sender: FDA-Public Use
  Company Number: 2006-BP-00418BP(1)

PATIENT
  Age: 71 Year
  Sex: Female

DRUGS (7)
  1. SPIRIVA [Suspect]
     Indication: CHRONIC OBSTRUCTIVE PULMONARY DISEASE
     Dosage: 18 MCG (18 MCG, 1 QD), IH
     Route: 055
     Dates: start: 20050121
  2. SPIRIVA [Suspect]
  3. SEREVENT [Concomitant]
  4. LEVOTHROID [Concomitant]
  5. MEVACOR [Concomitant]
  6. PROCARDIA [Concomitant]
  7. ASPIRIN [Concomitant]

REACTIONS (4)
  - FATIGUE [None]
  - MALAISE [None]
  - SLUGGISHNESS [None]
  - SOMNOLENCE [None]
